FAERS Safety Report 24988047 (Version 4)
Quarter: 2025Q3

REPORT INFORMATION
  Report Type: Report from Study
  Country: US (occurrence: US)
  Receive Date: 20250220
  Receipt Date: 20250831
  Transmission Date: 20251021
  Serious: Yes (Hospitalization, Other)
  Sender: ABBVIE
  Company Number: US-ABBVIE-6138610

PATIENT
  Age: 76 Year
  Sex: Female

DRUGS (1)
  1. SKYRIZI [Suspect]
     Active Substance: RISANKIZUMAB-RZAA
     Indication: Psoriasis
     Route: 058

REACTIONS (6)
  - Femur fracture [Recovering/Resolving]
  - Urinary tract infection [Not Recovered/Not Resolved]
  - Fall [Recovering/Resolving]
  - COVID-19 [Not Recovered/Not Resolved]
  - Drug hypersensitivity [Unknown]
  - Pain [Not Recovered/Not Resolved]

NARRATIVE: CASE EVENT DATE: 20250101
